FAERS Safety Report 14925328 (Version 1)
Quarter: 2018Q2

REPORT INFORMATION
  Report Type: Report from Study
  Country: US (occurrence: US)
  Receive Date: 20180522
  Receipt Date: 20180522
  Transmission Date: 20180711
  Serious: Yes (Other)
  Sender: FDA-Public Use
  Company Number: US-JAZZ-2018-US-007683

PATIENT
  Age: 37 Year
  Sex: Female

DRUGS (21)
  1. ATIVAN [Concomitant]
     Active Substance: LORAZEPAM
  2. LYRICA [Concomitant]
     Active Substance: PREGABALIN
  3. CYCLOBENZAPRINE. [Concomitant]
     Active Substance: CYCLOBENZAPRINE
  4. VIIBRYD [Concomitant]
     Active Substance: VILAZODONE HYDROCHLORIDE
  5. WELLBUTRIN [Concomitant]
     Active Substance: BUPROPION HYDROCHLORIDE
  6. XYREM [Suspect]
     Active Substance: SODIUM OXYBATE
     Dosage: DOSE ADJUSTMENT
     Route: 048
     Dates: start: 201502, end: 201712
  7. DEXILANT [Concomitant]
     Active Substance: DEXLANSOPRAZOLE
  8. TYLENOL EXTRA STRENGTH [Concomitant]
     Active Substance: ACETAMINOPHEN
  9. CELEBREX [Concomitant]
     Active Substance: CELECOXIB
  10. ZOLOFT [Concomitant]
     Active Substance: SERTRALINE HYDROCHLORIDE
  11. CAMBIA [Concomitant]
     Active Substance: DICLOFENAC POTASSIUM
  12. ONDANSETRON [Concomitant]
     Active Substance: ONDANSETRON
  13. KETOROLAC [Concomitant]
     Active Substance: KETOROLAC\KETOROLAC TROMETHAMINE
  14. TOPAMAX [Concomitant]
     Active Substance: TOPIRAMATE
  15. BACLOFEN. [Concomitant]
     Active Substance: BACLOFEN
  16. XYREM [Suspect]
     Active Substance: SODIUM OXYBATE
     Indication: NARCOLEPSY
     Dosage: 2.25 G, BID
     Route: 048
     Dates: start: 201502, end: 201502
  17. XYREM [Suspect]
     Active Substance: SODIUM OXYBATE
     Dosage: 3.75 G, BID
     Route: 048
     Dates: start: 201712
  18. ENTYVIO [Concomitant]
     Active Substance: VEDOLIZUMAB
  19. MAXALT [Concomitant]
     Active Substance: RIZATRIPTAN BENZOATE
  20. AMBIEN [Concomitant]
     Active Substance: ZOLPIDEM TARTRATE
  21. VITAMIN B12 [Concomitant]
     Active Substance: CYANOCOBALAMIN

REACTIONS (1)
  - Impaired gastric emptying [Not Recovered/Not Resolved]

NARRATIVE: CASE EVENT DATE: 201805
